FAERS Safety Report 23628489 (Version 2)
Quarter: 2024Q3

REPORT INFORMATION
  Report Type: Spontaneous
  Country: US (occurrence: US)
  Receive Date: 20240313
  Receipt Date: 20240912
  Transmission Date: 20241016
  Serious: No
  Sender: SANOFI AVENTIS
  Company Number: US-SANOFI-01971690

PATIENT
  Age: 31 Year
  Sex: Male
  Weight: 74.376 kg

DRUGS (6)
  1. ALPROLIX [Suspect]
     Active Substance: EFTRENONACOG ALFA
     Indication: Factor IX deficiency
     Dosage: 5800 UNITS (+/-10%), BIW (WEDNESDAY AND SUNDAY)
     Route: 042
  2. ALPROLIX [Suspect]
     Active Substance: EFTRENONACOG ALFA
     Indication: Factor IX deficiency
     Dosage: 5800 UNITS (+/-10%), BIW (WEDNESDAY AND SUNDAY)
     Route: 042
  3. ALPROLIX [Suspect]
     Active Substance: EFTRENONACOG ALFA
     Dosage: 3840 UNITS (+/-10%), PRN FOR MILD BLEEDS
     Route: 042
  4. ALPROLIX [Suspect]
     Active Substance: EFTRENONACOG ALFA
     Dosage: 3840 UNITS (+/-10%), PRN FOR MILD BLEEDS
     Route: 042
  5. ALPROLIX [Suspect]
     Active Substance: EFTRENONACOG ALFA
     Dosage: 7680 UNITS (+/-10%), PRN, FOR MAJOR/SEVERE BLEEDS
     Route: 042
  6. ALPROLIX [Suspect]
     Active Substance: EFTRENONACOG ALFA
     Dosage: 7680 UNITS (+/-10%), PRN, FOR MAJOR/SEVERE BLEEDS
     Route: 042

REACTIONS (1)
  - Haemorrhage [Recovered/Resolved]
